FAERS Safety Report 8307599 (Version 2)
Quarter: 2014Q4

REPORT INFORMATION
  Report Type: Spontaneous
  Country: JP (occurrence: None)
  Receive Date: 20111214
  Receipt Date: 20141028
  Transmission Date: 20150529
  Serious: Yes (Hospitalization, Other)
  Sender: FDA-Public Use
  Company Number: 2010JP001885

PATIENT
  Age: 7 Year
  Sex: Male

DRUGS (9)
  1. TACROLIMUS (TACROLIMUS) [Suspect]
     Active Substance: TACROLIMUS
     Indication: PROPHYLAXIS AGAINST GRAFT VERSUS HOST DISEASE
     Dosage: UNK UNK, UNKNOWN FEQ., INTRAVENOUS
     Route: 042
     Dates: start: 20091006
  2. THYMOGLOBULIN [Suspect]
     Active Substance: LAPINE T-LYMPHOCYTE IMMUNE GLOBULIN
     Indication: PREMEDICATION
     Dosage: 2.5 MG/KG, TOTAL DOSE
  3. METHOTREXATE (METHOTREXATE) [Suspect]
     Active Substance: METHOTREXATE
     Indication: PROPHYLAXIS AGAINST GRAFT VERSUS HOST DISEASE
     Dates: start: 20091008, end: 20091008
  4. ACYCLOVIR /00587301/ (ACICLOVIR) FORMULATION UNKNOWN [Concomitant]
  5. CYTARABINE (CYTARABINE) FORMULATION UNKNOWN [Concomitant]
  6. TACROLIMUS (TACROLIMUS) [Suspect]
     Active Substance: TACROLIMUS
     Indication: PROPHYLAXIS AGAINST GRAFT VERSUS HOST DISEASE
     Dosage: UNK, UNKNOWN FREQ., ORAL
     Route: 048
  7. SULFAMETHOXAZOLE AND TRIMETHOPRIM (SULFAMETHOXAZOLE, TRIMETHOPRIM) FORMULATION UNKNOWN? [Concomitant]
  8. PREDNISOLONE (PREDNISOLONE) [Suspect]
     Active Substance: PREDNISOLONE
     Indication: PROPHYLAXIS AGAINST GRAFT VERSUS HOST DISEASE
     Dosage: 1 MG/KG, ONCE DAILY, UNKNOWN
     Dates: start: 20091007, end: 20091106
  9. CYCLOPHOSPHAMDIE (CYCLOPHOSPHAMIDE) FORMULATION UNKNOWN [Concomitant]

REACTIONS (7)
  - Graft versus host disease in gastrointestinal tract [None]
  - Candida sepsis [None]
  - Graft versus host disease in liver [None]
  - Acute graft versus host disease [None]
  - Drug ineffective [None]
  - Cytomegalovirus viraemia [None]
  - Graft versus host disease in skin [None]
